FAERS Safety Report 5776693-3 (Version None)
Quarter: 2008Q2

REPORT INFORMATION
  Report Type: 
  Country: None (occurrence: None)
  Receive Date: 20080618
  Receipt Date: 20080314
  Transmission Date: 20081010
  Serious: No
  Sender: FDA-Public Use
  Company Number: US-ASTRAZENECA-2008UW05224

PATIENT
  Age: 68 Year
  Sex: Female
  Weight: 62.6 kg

DRUGS (8)
  1. SYMBICORT [Suspect]
     Indication: ASTHMA EXERCISE INDUCED
     Dosage: 160/4.5 UG
     Route: 055
     Dates: start: 20070801
  2. SYMBICORT [Suspect]
     Indication: CHRONIC OBSTRUCTIVE PULMONARY DISEASE
     Dosage: 160/4.5 UG
     Route: 055
     Dates: start: 20070801
  3. SYMBICORT [Suspect]
     Dosage: FOUR TO FIVE TIMES A DAY
     Route: 055
  4. SYMBICORT [Suspect]
     Dosage: FOUR TO FIVE TIMES A DAY
     Route: 055
  5. RITALIN [Concomitant]
  6. LISINOPRIL [Concomitant]
  7. GABAPENTIN [Concomitant]
  8. LEVOTHYROXINE SODIUM [Concomitant]

REACTIONS (2)
  - DYSPNOEA [None]
  - RIB FRACTURE [None]
